FAERS Safety Report 9445466 (Version 1)
Quarter: 2013Q3

REPORT INFORMATION
  Report Type: Spontaneous
  Country: FR (occurrence: None)
  Receive Date: 20130805
  Receipt Date: 20130805
  Transmission Date: 20140515
  Serious: Yes (Death)
  Sender: FDA-Public Use
  Company Number: 7226433

PATIENT
  Age: 83 Year
  Sex: Female

DRUGS (9)
  1. LEVOTHYROX [Suspect]
     Indication: PRODUCT USED FOR UNKNOWN INDICATION
     Route: 048
     Dates: start: 20130515
  2. HEPARIN SODIUM [Suspect]
     Indication: PRODUCT USED FOR UNKNOWN INDICATION
     Dosage: 1 IN 1 D
     Route: 042
     Dates: start: 20130515
  3. TARGOCID [Suspect]
     Route: 042
     Dates: start: 20130524
  4. INEXIUM [Suspect]
     Indication: PRODUCT USED FOR UNKNOWN INDICATION
     Route: 042
     Dates: start: 20130515
  5. LASILIX [Suspect]
     Indication: PRODUCT USED FOR UNKNOWN INDICATION
     Dosage: 40 MG IN 1 D
     Route: 048
     Dates: start: 20130516
  6. PERFALGAN [Suspect]
     Indication: PRODUCT USED FOR UNKNOWN INDICATION
     Route: 042
     Dates: start: 20130519
  7. METHYPREDNISOLONE [Suspect]
     Dosage: 60 MG 1 D
     Route: 042
     Dates: start: 20130516
  8. INSULIN [Suspect]
     Indication: PRODUCT USED FOR UNKNOWN INDICATION
     Route: 058
  9. TERBUTALINE SULFATE [Suspect]
     Indication: PRODUCT USED FOR UNKNOWN INDICATION
     Dosage: RESPIRATORY INHALATION
     Dates: start: 20130515

REACTIONS (6)
  - Thrombocytopenia [None]
  - Renal failure [None]
  - Pneumonia staphylococcal [None]
  - Infection [None]
  - Septic shock [None]
  - Multi-organ failure [None]
